FAERS Safety Report 24771870 (Version 1)
Quarter: 2024Q4

REPORT INFORMATION
  Report Type: Spontaneous
  Country: US (occurrence: US)
  Receive Date: 20241224
  Receipt Date: 20241224
  Transmission Date: 20250114
  Serious: No
  Sender: RIGEL PHARMACEUTICALS
  Company Number: US-RIGEL Pharmaceuticals IN-20241100129

PATIENT
  Sex: Female
  Weight: 103.42 kg

DRUGS (2)
  1. REZLIDHIA [Suspect]
     Active Substance: OLUTASIDENIB
     Indication: Myelodysplastic syndrome
     Dosage: 150 MG, BID
     Route: 048
     Dates: start: 20240222
  2. REZLIDHIA [Suspect]
     Active Substance: OLUTASIDENIB
     Indication: Acute myeloid leukaemia

REACTIONS (2)
  - Surgery [Unknown]
  - Off label use [Unknown]

NARRATIVE: CASE EVENT DATE: 20240101
